FAERS Safety Report 21456074 (Version 1)
Quarter: 2022Q4

REPORT INFORMATION
  Report Type: Spontaneous
  Country: US (occurrence: US)
  Receive Date: 20221014
  Receipt Date: 20221014
  Transmission Date: 20230112
  Serious: No
  Sender: FDA-Public Use
  Company Number: US-JNJFOC-20221024256

PATIENT
  Age: 78 Year
  Sex: Female

DRUGS (1)
  1. TYLENOL 8 HR ARTHRITIS PAIN [Suspect]
     Active Substance: ACETAMINOPHEN
     Indication: Pain
     Dosage: 4 TABLETS FOR SEVERE PAIN AND 2 EVERY MORNING TO GET  THROUGH THE DAY
     Route: 065

REACTIONS (1)
  - Off label use [Unknown]
